FAERS Safety Report 18251531 (Version 1)
Quarter: 2020Q3

REPORT INFORMATION
  Report Type: Spontaneous
  Country: FR (occurrence: FR)
  Receive Date: 20200910
  Receipt Date: 20200910
  Transmission Date: 20201103
  Serious: Yes (Hospitalization)
  Sender: FDA-Public Use
  Company Number: FR-ASTRAZENECA-2020SF11790

PATIENT
  Age: 63 Year
  Sex: Male

DRUGS (4)
  1. XEROQUEL LP [Suspect]
     Active Substance: QUETIAPINE FUMARATE
     Indication: DEPRESSION
     Route: 048
     Dates: start: 20200220, end: 20200228
  2. SERTRALINE ALMUS [Suspect]
     Active Substance: SERTRALINE HYDROCHLORIDE
     Indication: DEPRESSION
     Route: 048
     Dates: start: 20200220, end: 20200228
  3. LYSANXIA [Concomitant]
     Active Substance: PRAZEPAM
     Route: 048
     Dates: start: 20200220, end: 20200228
  4. ZOPICLONE ARROW [Concomitant]
     Active Substance: ZOPICLONE
     Route: 048
     Dates: start: 20200220, end: 20200228

REACTIONS (2)
  - Constipation [Recovered/Resolved]
  - Micturition disorder [Recovered/Resolved]

NARRATIVE: CASE EVENT DATE: 20200228
